FAERS Safety Report 4876088-0 (Version None)
Quarter: 2006Q1

REPORT INFORMATION
  Report Type: 
  Country: None (occurrence: None)
  Receive Date: 20060106
  Receipt Date: 20060106
  Transmission Date: 20060701
  Serious: Yes (Death, Life-Threatening, Hospitalization)
  Sender: FDA-Public Use
  Company Number: None

PATIENT
  Age: 64 Year
  Sex: Female
  Weight: 64.4108 kg

DRUGS (15)
  1. TARCEVA [Suspect]
     Indication: PANCREATIC CARCINOMA
     Dosage: 150 MG PO QD
     Route: 048
     Dates: start: 20040311
  2. XELODA [Suspect]
     Indication: PANCREATIC CARCINOMA
     Dosage: 500 MG/M2 PO Q12 HRS
     Route: 048
     Dates: start: 20040311
  3. ATIVAN [Concomitant]
  4. CLEOCIN [Concomitant]
  5. ENBREL [Concomitant]
  6. PLAQUENIL [Concomitant]
  7. FOLIC ACID [Concomitant]
  8. HYDROCORTISONE 2.5% CREAM [Concomitant]
  9. PROCRIT [Concomitant]
  10. ATARAX [Concomitant]
  11. ELIDEL [Concomitant]
  12. AMBIEN [Concomitant]
  13. LIDEX 0.5% CREAM [Concomitant]
  14. SYNTHROID [Concomitant]
  15. POTASSIUM CHLORIDE [Concomitant]

REACTIONS (26)
  - ANAEMIA [None]
  - ASCITES [None]
  - BILE DUCT OBSTRUCTION [None]
  - CEREBRAL INFARCTION [None]
  - CONFUSIONAL STATE [None]
  - CONSTIPATION [None]
  - DEVICE MIGRATION [None]
  - DIARRHOEA [None]
  - DRUG TOXICITY [None]
  - DUODENAL ULCER [None]
  - EMBOLIC STROKE [None]
  - GASTROINTESTINAL HAEMORRHAGE [None]
  - HAEMATEMESIS [None]
  - HAEMORRHOIDS [None]
  - HIATUS HERNIA [None]
  - INFECTION [None]
  - LABORATORY TEST ABNORMAL [None]
  - MALIGNANT NEOPLASM PROGRESSION [None]
  - MUCOUS MEMBRANE DISORDER [None]
  - OEDEMA PERIPHERAL [None]
  - OESOPHAGEAL HAEMORRHAGE [None]
  - OESOPHAGITIS [None]
  - ORAL INTAKE REDUCED [None]
  - RECTAL HAEMORRHAGE [None]
  - RENAL FAILURE ACUTE [None]
  - VARICES OESOPHAGEAL [None]
